FAERS Safety Report 9570845 (Version 1)
Quarter: 2013Q4

REPORT INFORMATION
  Report Type: Spontaneous
  Country: FR (occurrence: FR)
  Receive Date: 20131001
  Receipt Date: 20131001
  Transmission Date: 20140711
  Serious: Yes (Hospitalization)
  Sender: FDA-Public Use
  Company Number: FR-ASTRAZENECA-2013SE71582

PATIENT
  Age: 33812 Day
  Sex: Female

DRUGS (4)
  1. ATACAND [Suspect]
     Indication: HYPERTENSION
     Route: 048
     Dates: end: 20121003
  2. SEVIKAR [Suspect]
     Indication: HYPERTENSION
     Route: 048
     Dates: start: 20121002, end: 20121003
  3. KERLONE [Suspect]
     Indication: HYPERTENSION
     Route: 048
     Dates: end: 20121003
  4. FLUDEX [Suspect]
     Indication: HYPERTENSION
     Route: 048
     Dates: end: 20121003

REACTIONS (3)
  - Confusional state [Recovered/Resolved]
  - Verbigeration [Recovered/Resolved]
  - Hyponatraemia [Recovered/Resolved]
